FAERS Safety Report 20496307 (Version 1)
Quarter: 2022Q1

REPORT INFORMATION
  Report Type: Spontaneous
  Country: CA (occurrence: CA)
  Receive Date: 20220221
  Receipt Date: 20220221
  Transmission Date: 20220424
  Serious: Yes (Other)
  Sender: FDA-Public Use
  Company Number: CA-PFIZER INC-202200235551

PATIENT
  Age: 58 Year
  Sex: Male

DRUGS (1)
  1. VORICONAZOLE [Suspect]
     Active Substance: VORICONAZOLE
     Indication: Pulmonary mucormycosis
     Dosage: UNK

REACTIONS (3)
  - Delirium [Unknown]
  - Hallucination, visual [Unknown]
  - Postoperative delirium [Unknown]
